FAERS Safety Report 13622340 (Version 1)
Quarter: 2017Q2

REPORT INFORMATION
  Report Type: Spontaneous
  Country: US (occurrence: US)
  Receive Date: 20170607
  Receipt Date: 20170607
  Transmission Date: 20170830
  Serious: No
  Sender: FDA-Public Use
  Company Number: US-ROCHE-1761840

PATIENT
  Sex: Male

DRUGS (4)
  1. CISPLATIN. [Concomitant]
     Active Substance: CISPLATIN
  2. GEMCITABINE [Concomitant]
     Active Substance: GEMCITABINE\GEMCITABINE HYDROCHLORIDE
  3. XELODA [Suspect]
     Active Substance: CAPECITABINE
     Indication: HEPATIC CANCER
     Route: 065
  4. FLUOROURACIL. [Concomitant]
     Active Substance: FLUOROURACIL

REACTIONS (2)
  - Drug ineffective [Unknown]
  - Neoplasm progression [Unknown]
